FAERS Safety Report 10528278 (Version 1)
Quarter: 2014Q4

REPORT INFORMATION
  Report Type: Spontaneous
  Country: US (occurrence: None)
  Receive Date: 20141017
  Receipt Date: 20141017
  Transmission Date: 20150528
  Serious: Yes (Hospitalization)
  Sender: FDA-Public Use
  Company Number: None

PATIENT
  Age: 69 Year
  Sex: Female
  Weight: 69.85 kg

DRUGS (1)
  1. EFFIENT [Suspect]
     Active Substance: PRASUGREL HYDROCHLORIDE
     Indication: STENT PLACEMENT
     Dosage: 1 PILL PER DAY
     Dates: start: 20140220, end: 20140930

REACTIONS (5)
  - Muscle spasms [None]
  - Localised infection [None]
  - Haemorrhage subcutaneous [None]
  - Local swelling [None]
  - Erythema [None]
